FAERS Safety Report 9172653 (Version 2)
Quarter: 2013Q4

REPORT INFORMATION
  Report Type: Report from Study
  Country: CH (occurrence: CH)
  Receive Date: 20130319
  Receipt Date: 20131108
  Transmission Date: 20140711
  Serious: Yes (Death, Other)
  Sender: FDA-Public Use
  Company Number: CH-CUBIST PHARMACEUTICAL, INC.-2011S1000257

PATIENT
  Sex: 0

DRUGS (6)
  1. DAPTOMYCIN [Suspect]
     Indication: BACTERAEMIA
     Dosage: 500 MG, Q24H
     Route: 042
     Dates: start: 20110319, end: 20110323
  2. DAPTOMYCIN [Suspect]
     Dosage: 5.9 MG/KG, Q24H
     Route: 042
     Dates: start: 20110319, end: 20110323
  3. TAZOBAC [Suspect]
     Indication: PYREXIA
     Dosage: UNK UNK, UNK
     Route: 065
     Dates: start: 20110319, end: 20110323
  4. VANCOMYCIN [Concomitant]
     Dosage: UNK UNK, UNK
     Route: 065
     Dates: start: 20110311, end: 20110323
  5. NEXIUM                             /01479302/ [Concomitant]
     Dosage: UNK UNK, UNK
     Route: 065
     Dates: end: 20110323
  6. FUROSEMIDE [Concomitant]
     Indication: PRODUCT USED FOR UNKNOWN INDICATION
     Dosage: UNK

REACTIONS (4)
  - Acute hepatic failure [Recovering/Resolving]
  - Cardiovascular insufficiency [Recovering/Resolving]
  - Infection [Recovering/Resolving]
  - Diarrhoea [Recovering/Resolving]
